FAERS Safety Report 9476580 (Version 1)
Quarter: 2013Q3

REPORT INFORMATION
  Report Type: Spontaneous
  Country: US (occurrence: None)
  Receive Date: 20130823
  Receipt Date: 20130823
  Transmission Date: 20140515
  Serious: Yes (Other)
  Sender: FDA-Public Use
  Company Number: None

PATIENT
  Age: 39 Year
  Sex: Male
  Weight: 122.47 kg

DRUGS (1)
  1. LISTERINE TOTAL CARE ZERO [Suspect]
     Indication: DENTAL DISORDER PROPHYLAXIS
     Dates: start: 20130818, end: 20130820

REACTIONS (2)
  - Oral pain [None]
  - Oral mucosal exfoliation [None]
